FAERS Safety Report 9396767 (Version 1)
Quarter: 2013Q3

REPORT INFORMATION
  Report Type: Spontaneous
  Country: SE (occurrence: SE)
  Receive Date: 20130712
  Receipt Date: 20130712
  Transmission Date: 20140515
  Serious: Yes (Hospitalization)
  Sender: FDA-Public Use
  Company Number: SE-ASTRAZENECA-2013SE50630

PATIENT
  Age: 84 Year
  Sex: Male

DRUGS (16)
  1. SYMBICORT TURBUHALER [Suspect]
     Route: 055
     Dates: end: 20130312
  2. SPIRIVA [Concomitant]
  3. ACLASTA [Concomitant]
  4. OMEPRAZOL [Concomitant]
  5. SIMVASTATIN [Concomitant]
  6. ZOPIKLON [Concomitant]
  7. CITALOPRAM [Concomitant]
  8. MATRIFEN (TAKEDA PHARMA AB) [Concomitant]
     Route: 062
  9. KALCIPOS-D FORTE (RECIP AB) [Concomitant]
     Dosage: 500 MG/800 IE
  10. DUROFERON (ACO HUD NORDIC AB) [Concomitant]
     Dosage: 100 MG FE2+
  11. EMOVAT (GLAXOSMITHKLINE AB) [Concomitant]
  12. FURIX (TAKEDA PHARMA AB) [Concomitant]
  13. ELOCON (MERCK SHARP + DOHME BV) [Concomitant]
     Route: 003
  14. TROMBYL (PFIZER AB) [Concomitant]
  15. PREDNISOLON [Concomitant]
  16. MOVICOL [Concomitant]
     Route: 048

REACTIONS (3)
  - Dysphagia [Unknown]
  - Hypersensitivity [Unknown]
  - Pruritus [Unknown]
